FAERS Safety Report 9174358 (Version 1)
Quarter: 2013Q1

REPORT INFORMATION
  Report Type: Spontaneous
  Country: US (occurrence: None)
  Receive Date: 20130314
  Receipt Date: 20130314
  Transmission Date: 20140127
  Serious: Yes (Other)
  Sender: FDA-Public Use
  Company Number: E2B_00000632

PATIENT
  Sex: Female

DRUGS (2)
  1. CEFIXIME [Suspect]
     Indication: PRODUCT USED FOR UNKNOWN INDICATION
  2. GUAINFENESIN (ROBITUSSIN) [Concomitant]

REACTIONS (1)
  - Blindness transient [None]
